FAERS Safety Report 5423786-6 (Version None)
Quarter: 2007Q3

REPORT INFORMATION
  Report Type: 
  Country: None (occurrence: None)
  Receive Date: 20070727
  Receipt Date: 20040220
  Transmission Date: 20080115
  Serious: Yes (Hospitalization)
  Sender: FDA-Public Use
  Company Number: THYM-10170

PATIENT
  Age: 39 Year
  Sex: Female
  Weight: 83 kg

DRUGS (4)
  1. THYMOGLOBULIN [Suspect]
     Indication: RENAL TRANSPLANT
     Dosage: 125 MG
     Dates: start: 20031109, end: 20031113
  2. TACROLIMUS [Concomitant]
  3. MYCOPHENOLATE MOFETIL [Concomitant]
  4. PREDNISONE [Concomitant]

REACTIONS (1)
  - WOUND INFECTION [None]
